FAERS Safety Report 21584194 (Version 1)
Quarter: 2022Q4

REPORT INFORMATION
  Report Type: Spontaneous
  Country: FR (occurrence: FR)
  Receive Date: 20221111
  Receipt Date: 20221111
  Transmission Date: 20230113
  Serious: Yes (Hospitalization, Other)
  Sender: FDA-Public Use
  Company Number: None

PATIENT
  Age: 55 Year
  Sex: Male
  Weight: 76.6 kg

DRUGS (1)
  1. METHOTREXATE (METHOTREXATE SODIUM) [Suspect]
     Active Substance: METHOTREXATE SODIUM
     Indication: B-cell lymphoma stage IV
     Dosage: FREQUENCY TIME : 1 TOTAL, DURATION: 1 DAY, UNIT DOSE: 6615 MG
     Route: 065
     Dates: start: 20220926, end: 20220926

REACTIONS (2)
  - Renal failure [Recovering/Resolving]
  - Rales [Recovering/Resolving]

NARRATIVE: CASE EVENT DATE: 20220928
